FAERS Safety Report 4388592-2 (Version None)
Quarter: 2004Q2

REPORT INFORMATION
  Report Type: 
  Country: None (occurrence: None)
  Receive Date: 20040624
  Receipt Date: 20040611
  Transmission Date: 20050107
  Serious: Yes (Life-Threatening, Hospitalization)
  Sender: FDA-Public Use
  Company Number: 2004021934

PATIENT
  Age: 84 Year
  Sex: Female
  Weight: 85 kg

DRUGS (8)
  1. NEURONTIN [Suspect]
     Indication: ILL-DEFINED DISORDER
     Dosage: 1800 MG (3 IN 1 D)
     Dates: end: 20031231
  2. RALOXIFENE HCL [Suspect]
     Indication: ILL-DEFINED DISORDER
     Dosage: ORAL
     Route: 048
     Dates: end: 20031231
  3. INDAPAMIDE [Concomitant]
  4. TRIMETAZIDINE HYDROCHLORIDE (TRIMETAZIDINE HYDROCHLORIDE) [Concomitant]
  5. IBUPROFEN [Concomitant]
  6. PARACETAMOL (PARACETAMOL) [Concomitant]
  7. ALDACTAZIDE [Concomitant]
  8. RABEPRAZOLE SODIUM (RABEPRAZOLE SODIUM) [Concomitant]

REACTIONS (11)
  - ABNORMAL BEHAVIOUR [None]
  - ANOREXIA [None]
  - ANXIETY [None]
  - CEREBELLAR SYNDROME [None]
  - DEPRESSED LEVEL OF CONSCIOUSNESS [None]
  - DRUG INTOLERANCE [None]
  - DRUG TOXICITY [None]
  - INSOMNIA [None]
  - PAIN IN EXTREMITY [None]
  - RESTLESS LEGS SYNDROME [None]
  - SUICIDAL IDEATION [None]
